FAERS Safety Report 4679555-8 (Version None)
Quarter: 2005Q2

REPORT INFORMATION
  Report Type: 
  Country: None (occurrence: None)
  Receive Date: 20050602
  Receipt Date: 20050524
  Transmission Date: 20051028
  Serious: Yes (Hospitalization, Other)
  Sender: FDA-Public Use
  Company Number: PHNU2005DE02056

PATIENT
  Age: 70 Year
  Sex: Male

DRUGS (3)
  1. SANDIMMUNE [Suspect]
     Indication: HEART TRANSPLANT
     Dosage: 150 MG DAILY
     Route: 048
     Dates: start: 19920101
  2. IMUREK [Concomitant]
     Indication: IMMUNOSUPPRESSION
  3. PREDNISONE TAB [Concomitant]
     Indication: IMMUNOSUPPRESSION

REACTIONS (5)
  - ARTHRALGIA [None]
  - GAIT DISTURBANCE [None]
  - MOTOR DYSFUNCTION [None]
  - OSTEONECROSIS [None]
  - PROSTATE CANCER [None]
